FAERS Safety Report 20663203 (Version 1)
Quarter: 2022Q2

REPORT INFORMATION
  Report Type: Spontaneous
  Country: FR (occurrence: FR)
  Receive Date: 20220401
  Receipt Date: 20220401
  Transmission Date: 20220721
  Serious: Yes (Hospitalization)
  Sender: FDA-Public Use
  Company Number: FR-CELGENE-FRA-20200904479

PATIENT
  Age: 63 Year
  Sex: Male
  Weight: 85 kg

DRUGS (22)
  1. BORTEZOMIB [Suspect]
     Active Substance: BORTEZOMIB
     Indication: Plasma cell myeloma
     Dosage: 2.7 MILLIGRAM
     Route: 058
     Dates: start: 20190909
  2. BORTEZOMIB [Suspect]
     Active Substance: BORTEZOMIB
     Dosage: 2.7 MILLIGRAM
     Route: 058
     Dates: start: 20200605
  3. DEXAMETHASONE [Suspect]
     Active Substance: DEXAMETHASONE
     Indication: Plasma cell myeloma
     Dosage: 40 MILLIGRAM
     Route: 048
     Dates: start: 20190909
  4. DEXAMETHASONE [Suspect]
     Active Substance: DEXAMETHASONE
     Dosage: 40 MILLIGRAM
     Route: 048
     Dates: start: 20200606
  5. LENALIDOMIDE [Suspect]
     Active Substance: LENALIDOMIDE
     Indication: Plasma cell myeloma
     Dosage: 10 MILLIGRAM
     Route: 048
     Dates: start: 20190909, end: 20200831
  6. LENALIDOMIDE [Suspect]
     Active Substance: LENALIDOMIDE
     Dosage: 10 MILLIGRAM (START DATE: 03-SEP-2020)
     Route: 048
     Dates: start: 20200903
  7. DARATUMUMAB [Suspect]
     Active Substance: DARATUMUMAB
     Indication: Plasma cell myeloma
     Dosage: 1800 MILLIGRAM
     Route: 058
     Dates: start: 20190909
  8. DARATUMUMAB [Suspect]
     Active Substance: DARATUMUMAB
     Dosage: 1800 MILLIGRAM
     Route: 058
     Dates: start: 20200817
  9. VALACYCLOVIR HYDROCHLORIDE [Concomitant]
     Active Substance: VALACYCLOVIR HYDROCHLORIDE
     Indication: Prophylaxis
     Dosage: 500 MILLIGRAM
     Route: 048
     Dates: start: 20190909
  10. CALCIUM CARBONATE\CHOLECALCIFEROL [Concomitant]
     Active Substance: CALCIUM CARBONATE\CHOLECALCIFEROL
     Indication: Prophylaxis
     Dosage: UNK
     Route: 048
  11. ERYTHROPOIETIN [Concomitant]
     Active Substance: ERYTHROPOIETIN
     Indication: Anaemia
     Dosage: 30000 INTERNATIONAL UNIT
     Route: 058
     Dates: start: 20200229
  12. FOLIC ACID [Concomitant]
     Active Substance: FOLIC ACID
     Indication: Prophylaxis
     Dosage: 5 MILLIGRAM
     Route: 065
  13. MINERAL OIL [Concomitant]
     Active Substance: MINERAL OIL
     Indication: Constipation prophylaxis
     Dosage: 3 UNK, QD
     Route: 048
     Dates: start: 20200306
  14. AVOCADO OIL\SOYBEAN OIL [Concomitant]
     Active Substance: AVOCADO OIL\SOYBEAN OIL
     Indication: Osteoarthritis
     Dosage: 1 UNK, QD
     Route: 048
  15. METFORMIN HYDROCHLORIDE [Concomitant]
     Active Substance: METFORMIN HYDROCHLORIDE
     Indication: Diabetes mellitus
     Dosage: 500 MILLIGRAM
     Route: 065
     Dates: start: 20191129
  16. CORDARONE [Concomitant]
     Active Substance: AMIODARONE HYDROCHLORIDE
     Indication: Arrhythmia
     Dosage: 200 MILLIGRAM
     Route: 048
     Dates: start: 20200312
  17. PANTOPRAZOLE SODIUM [Concomitant]
     Active Substance: PANTOPRAZOLE SODIUM
     Indication: Gastrointestinal disorder therapy
     Dosage: 40 MILLIGRAM, QD
     Route: 048
  18. ELIQUIS [Concomitant]
     Active Substance: APIXABAN
     Indication: Thrombosis prophylaxis
     Dosage: 5 MILLIGRAM, QD
     Route: 048
     Dates: start: 20200427
  19. TAHOR [Concomitant]
     Active Substance: ATORVASTATIN CALCIUM
     Indication: Hypercholesterolaemia
     Dosage: 10 MILLIGRAM, QD
     Route: 048
  20. Daflon [Concomitant]
     Indication: Haemorrhoids
     Dosage: 1000 MILLIGRAM, QD
     Route: 048
     Dates: start: 20200225
  21. PENTACARINAT [Concomitant]
     Active Substance: PENTAMIDINE ISETHIONATE
     Indication: Prophylaxis
     Dosage: 10 MILLIGRAM
     Route: 055
     Dates: start: 20200218
  22. TITANOREINE [Concomitant]
     Active Substance: CARRAGEENAN\TITANIUM\ZINC
     Indication: Haemorrhoids
     Dosage: 1 UNK, QD
     Route: 054
     Dates: start: 20200816

REACTIONS (1)
  - Lower respiratory tract infection bacterial [Recovered/Resolved]

NARRATIVE: CASE EVENT DATE: 20200823
